FAERS Safety Report 4621516-9 (Version None)
Quarter: 2005Q1

REPORT INFORMATION
  Report Type: 
  Country: None (occurrence: None)
  Receive Date: 20050328
  Receipt Date: 20031125
  Transmission Date: 20050727
  Serious: No
  Sender: FDA-Public Use
  Company Number: 10036

PATIENT
  Age: 65 Year
  Sex: Female

DRUGS (12)
  1. METHOTREXATE [Suspect]
     Dosage: 12.5 MG WEEKLY;
     Dates: start: 19500101
  2. ETANERCEPT [Suspect]
     Dosage: 25 MG BID;
     Dates: start: 20010109
  3. ESTRADIOL [Suspect]
     Dosage: 200 MICROGRAM WEEKLY;
     Dates: start: 19930101, end: 20000101
  4. ALENDRONATE SODIUM [Concomitant]
  5. CALCIUM GLUCONATE [Concomitant]
  6. ERGOCALCIFEROL [Concomitant]
  7. IBUPROFEN [Concomitant]
  8. LANSOPRAZOLE [Concomitant]
  9. METOPROLOL SUCCINATE [Concomitant]
  10. PREDNISONE [Concomitant]
  11. RAMIPRIL [Concomitant]
  12. ROFECOXIB [Concomitant]

REACTIONS (4)
  - ABSCESS LIMB [None]
  - CHOLECYSTITIS ACUTE [None]
  - ENDOMETRIAL CANCER METASTATIC [None]
  - INJECTION SITE INFECTION [None]
